FAERS Safety Report 4877454-X (Version None)
Quarter: 2006Q1

REPORT INFORMATION
  Report Type: 
  Country: None (occurrence: None)
  Receive Date: 20060109
  Receipt Date: 20051229
  Transmission Date: 20060701
  Serious: Yes (Other)
  Sender: FDA-Public Use
  Company Number: 2005143969

PATIENT
  Age: 46 Year
  Sex: Female

DRUGS (7)
  1. LYRICA [Suspect]
     Indication: NEUROPATHY
     Dosage: 150 MG (50 MG, 3 IN 1 D)
  2. TRIAMCINOLONE [Suspect]
     Indication: HYPOAESTHESIA
     Dosage: WEEKLY
     Dates: start: 20050823, end: 20051011
  3. ALLEGRA [Concomitant]
  4. PROTONIX [Concomitant]
  5. MONTELUKAST (MONTELUKAST) [Concomitant]
  6. ADVAIR (FLUTICASOE PROPIONATE, SALMETEROL XINAFOATE} [Concomitant]
  7. LASIX [Concomitant]

REACTIONS (6)
  - COMPLEX REGIONAL PAIN SYNDROME [None]
  - DYSPNOEA [None]
  - GENERALISED OEDEMA [None]
  - HYPOAESTHESIA [None]
  - OEDEMA PERIPHERAL [None]
  - PULMONARY OEDEMA [None]
